FAERS Safety Report 9693723 (Version 2)
Quarter: 2014Q2

REPORT INFORMATION
  Report Type: Spontaneous
  Country: US (occurrence: US)
  Receive Date: 20131118
  Receipt Date: 20140430
  Transmission Date: 20141212
  Serious: Yes (Hospitalization)
  Sender: FDA-Public Use
  Company Number: US-B.I. PHARMACEUTICALS,INC./RIDGEFIELD-2013-BI-36927BP

PATIENT
  Sex: Female
  Weight: 117.93 kg

DRUGS (24)
  1. PRADAXA [Suspect]
     Indication: ATRIAL FIBRILLATION
     Dosage: 300 MG
     Route: 065
     Dates: start: 201210, end: 20121201
  2. ECOTRIN [Suspect]
     Indication: ATRIAL FIBRILLATION
     Dosage: 325 MG
     Route: 065
     Dates: end: 20121201
  3. FISH OIL [Concomitant]
     Dosage: 1 G
     Route: 065
  4. CAPOTEN [Concomitant]
     Dosage: 75 MG
     Route: 065
  5. ALDACTONE [Concomitant]
     Dosage: 50 MG
     Route: 065
  6. DIGOXIN [Concomitant]
     Dosage: 125 MCG
     Route: 065
  7. TOPROL XL [Concomitant]
     Dosage: 50 MG
     Route: 065
  8. LASIX [Concomitant]
     Dosage: 80 MG
     Route: 065
  9. ZANTAC [Concomitant]
     Route: 065
  10. LEVSIN [Concomitant]
     Dosage: 0.125 MG
     Route: 065
  11. SYNTHROID [Concomitant]
     Dosage: 50 MCG
     Route: 065
  12. TRICOR [Concomitant]
     Dosage: 48 MG
     Route: 065
  13. PRAVACHOL [Concomitant]
     Dosage: 20 MG
     Route: 065
  14. LEVEMIR [Concomitant]
     Dosage: 160 U
     Route: 058
  15. NOVOLOG [Concomitant]
     Route: 065
  16. MULTIVITAMIN [Concomitant]
     Route: 065
  17. VITRON-C [Concomitant]
     Route: 065
  18. PROZAC [Concomitant]
     Dosage: 40 MG
     Route: 065
  19. EFFEXOR [Concomitant]
     Dosage: 150 MG
     Route: 065
  20. ADVAIR [Concomitant]
     Dosage: 2 PUF
     Route: 065
  21. SINGULAIR [Concomitant]
     Dosage: 10 MG
     Route: 065
  22. SPIRIVA [Concomitant]
     Dosage: 1 PUF
     Route: 065
  23. CLARITIN [Concomitant]
     Dosage: 10 MG
     Route: 065
  24. PROAIR [Concomitant]
     Route: 065

REACTIONS (4)
  - Gastrointestinal haemorrhage [Unknown]
  - Haemorrhagic anaemia [Unknown]
  - Renal failure acute [Unknown]
  - Haematuria [Unknown]
